FAERS Safety Report 5606064-1 (Version None)
Quarter: 2008Q1

REPORT INFORMATION
  Report Type: 
  Country: None (occurrence: None)
  Receive Date: 20080123
  Receipt Date: 20080123
  Transmission Date: 20080703
  Serious: Yes (Other)
  Sender: FDA-Public Use
  Company Number: None

PATIENT
  Age: 75 Year
  Sex: Male
  Weight: 86.1834 kg

DRUGS (4)
  1. LIPITOR [Suspect]
     Indication: BLOOD CHOLESTEROL INCREASED
     Dosage: 20 MG ONCE DAILY PO
     Route: 048
     Dates: start: 20070101, end: 20070630
  2. LIPITOR [Suspect]
     Indication: LOW DENSITY LIPOPROTEIN INCREASED
     Dosage: 20 MG ONCE DAILY PO
     Route: 048
     Dates: start: 20070101, end: 20070630
  3. LIPITOR [Suspect]
     Indication: BLOOD CHOLESTEROL INCREASED
     Dosage: 10 MG ONCE DAILY PO
     Route: 048
     Dates: start: 20070701, end: 20071231
  4. LIPITOR [Suspect]
     Indication: LOW DENSITY LIPOPROTEIN INCREASED
     Dosage: 10 MG ONCE DAILY PO
     Route: 048
     Dates: start: 20070701, end: 20071231

REACTIONS (4)
  - APHASIA [None]
  - BRADYPHRENIA [None]
  - COGNITIVE DISORDER [None]
  - SPEECH DISORDER [None]
